FAERS Safety Report 9631825 (Version 1)
Quarter: 2013Q4

REPORT INFORMATION
  Report Type: Spontaneous
  Country: FR (occurrence: FR)
  Receive Date: 20131018
  Receipt Date: 20131018
  Transmission Date: 20140711
  Serious: Yes (Hospitalization, Other)
  Sender: FDA-Public Use
  Company Number: FR-ACTAVIS-2013-18069

PATIENT
  Age: 62 Year
  Sex: Female

DRUGS (4)
  1. PREDNISOLONE (UNKNOWN) [Suspect]
     Indication: ASTHMA
     Dosage: 20 MG, DAILY
     Route: 048
  2. BUDESONIDE [Interacting]
     Indication: ASTHMA
     Dosage: 400 ?G, DAILY
     Route: 055
  3. AMIODARONE (UNKNOWN) [Interacting]
     Indication: ARRHYTHMIA SUPRAVENTRICULAR
     Dosage: 200 MG, DAILY, 5 DAYS/WEEK
     Route: 065
  4. ITRACONAZOLE (UNKNOWN) [Interacting]
     Indication: BRONCHOPULMONARY ASPERGILLOSIS
     Dosage: 200 MG, DAILY
     Route: 065

REACTIONS (4)
  - Cushing^s syndrome [Unknown]
  - Hepatic steatosis [Unknown]
  - Hyperthyroidism [Unknown]
  - Potentiating drug interaction [Unknown]
